FAERS Safety Report 4566536-8 (Version None)
Quarter: 2005Q1

REPORT INFORMATION
  Report Type: 
  Country: None (occurrence: None)
  Receive Date: 20050126
  Receipt Date: 20050126
  Transmission Date: 20050727
  Serious: Yes (Hospitalization)
  Sender: FDA-Public Use
  Company Number: None

PATIENT
  Age: 82 Year
  Sex: Male
  Weight: 75.7507 kg

DRUGS (4)
  1. FELODIPINE 10MG RENEWED 6/04-11/30/04 [Suspect]
     Indication: HYPERTENSION
     Dosage: 1 TABLET QD
     Dates: start: 20040604, end: 20041130
  2. LISINOPRIL 40MG RENEWED 6/04-11/30/04 [Suspect]
     Indication: HYPERTENSION
     Dosage: 1 TABLETS QD
     Dates: start: 20040604, end: 20041130
  3. METOPROLOL 50MG BID RENEWED 6/04-11/30/04 [Suspect]
     Indication: HYPERTENSION
  4. TERAZOSIN 2MG QHS RENEWED 6/04-11/30/04 [Suspect]
     Dosage: 2MG QHS
     Dates: start: 20040604, end: 20041130

REACTIONS (2)
  - DIZZINESS [None]
  - SYNCOPE [None]
